FAERS Safety Report 21954837 (Version 1)
Quarter: 2023Q1

REPORT INFORMATION
  Report Type: Spontaneous
  Country: CN (occurrence: None)
  Receive Date: 20230205
  Receipt Date: 20230205
  Transmission Date: 20230418
  Serious: Yes (Hospitalization, Other)
  Sender: FDA-Public Use
  Company Number: CN-ROCHE-3278636

PATIENT
  Age: 70 Year
  Sex: Male
  Weight: 80 kg

DRUGS (4)
  1. AVASTIN [Suspect]
     Active Substance: BEVACIZUMAB
     Indication: Lung adenocarcinoma
     Route: 041
     Dates: start: 20221104, end: 20221112
  2. RIVAROXABAN [Concomitant]
     Active Substance: RIVAROXABAN
     Indication: Deep vein thrombosis
     Route: 048
     Dates: start: 20221018, end: 20221113
  3. DOCETAXEL [Concomitant]
     Active Substance: DOCETAXEL
     Indication: Lung adenocarcinoma
     Route: 041
     Dates: start: 20221104, end: 20221104
  4. CARBOPLATIN [Concomitant]
     Active Substance: CARBOPLATIN
     Indication: Lung adenocarcinoma
     Route: 041
     Dates: start: 20221104, end: 20221104

REACTIONS (2)
  - Epistaxis [Recovered/Resolved]
  - Blood loss anaemia [Recovering/Resolving]

NARRATIVE: CASE EVENT DATE: 20221112
